FAERS Safety Report 6887757-5 (Version None)
Quarter: 2010Q3

REPORT INFORMATION
  Report Type: 
  Country: None (occurrence: None)
  Receive Date: 20100730
  Receipt Date: 20100722
  Transmission Date: 20110219
  Serious: Yes (Other)
  Sender: FDA-Public Use
  Company Number: FR-ROCHE-717191

PATIENT
  Sex: Female

DRUGS (2)
  1. AVASTIN [Suspect]
     Indication: BREAST CANCER
     Dosage: FREQUENCY: BY CYCLE
     Route: 042
     Dates: start: 20100514, end: 20100514
  2. TAXOTERE [Suspect]
     Indication: BREAST CANCER
     Dosage: FREQUENCY: BY CYCLE
     Route: 042
     Dates: start: 20100514, end: 20100514

REACTIONS (1)
  - PALMAR-PLANTAR ERYTHRODYSAESTHESIA SYNDROME [None]
